FAERS Safety Report 15427060 (Version 1)
Quarter: 2018Q3

REPORT INFORMATION
  Report Type: Spontaneous
  Country: US (occurrence: US)
  Receive Date: 20180925
  Receipt Date: 20180925
  Transmission Date: 20181010
  Serious: Yes (Other)
  Sender: FDA-Public Use
  Company Number: US-INDIVIOR LIMITED-INDV-109513-2018

PATIENT
  Age: 24 Year
  Sex: Female

DRUGS (2)
  1. BUPRENORPHINE GENERIC TAB [Suspect]
     Active Substance: BUPRENORPHINE
     Indication: DRUG DEPENDENCE
     Dosage: UNK
     Route: 060
  2. SUBOXONE [Suspect]
     Active Substance: BUPRENORPHINE HYDROCHLORIDE\NALOXONE HYDROCHLORIDE
     Indication: DRUG DEPENDENCE
     Dosage: 8 MG, QD
     Route: 060

REACTIONS (2)
  - Anaphylactic reaction [Recovered/Resolved]
  - Maternal exposure during pregnancy [Not Recovered/Not Resolved]
